FAERS Safety Report 20874307 (Version 1)
Quarter: 2022Q2

REPORT INFORMATION
  Report Type: Spontaneous
  Country: None (occurrence: US)
  Receive Date: 20220525
  Receipt Date: 20220525
  Transmission Date: 20220720
  Serious: No
  Sender: FDA-Public Use
  Company Number: US-Sunstar Americas Inc.-2129187

PATIENT
  Age: 76 Year
  Sex: Male
  Weight: 68.182 kg

DRUGS (1)
  1. PAROEX [Suspect]
     Active Substance: CHLORHEXIDINE GLUCONATE
     Indication: Endodontic procedure
     Route: 048
     Dates: start: 20200928, end: 20201005

REACTIONS (1)
  - Abscess [Unknown]
